FAERS Safety Report 21535506 (Version 1)
Quarter: 2022Q4

REPORT INFORMATION
  Report Type: Spontaneous
  Country: US (occurrence: None)
  Receive Date: 20221031
  Receipt Date: 20221031
  Transmission Date: 20230113
  Serious: Yes (Life-Threatening, Hospitalization, Disabling, Other)
  Sender: FDA-Public Use
  Company Number: None

PATIENT
  Age: 32 Year
  Sex: Female
  Weight: 85.5 kg

DRUGS (1)
  1. SUBOXONE [Suspect]
     Active Substance: BUPRENORPHINE HYDROCHLORIDE\NALOXONE HYDROCHLORIDE
     Indication: Substance abuse
     Dosage: OTHER QUANTITY : 1 90;?FREQUENCY : 3 TIMES A DAY;?
     Route: 060
     Dates: start: 20100601, end: 20220315

REACTIONS (14)
  - Drug dependence [None]
  - Withdrawal syndrome [None]
  - Dental caries [None]
  - Poor personal hygiene [None]
  - General physical health deterioration [None]
  - Sepsis [None]
  - Haematological infection [None]
  - Inability to afford medication [None]
  - Quality of life decreased [None]
  - Depression [None]
  - Self esteem decreased [None]
  - Emotional distress [None]
  - Feeling guilty [None]
  - Stereotypy [None]

NARRATIVE: CASE EVENT DATE: 20100601
